FAERS Safety Report 11533461 (Version 1)
Quarter: 2015Q3

REPORT INFORMATION
  Report Type: Spontaneous
  Country: GB (occurrence: GB)
  Receive Date: 20150921
  Receipt Date: 20150921
  Transmission Date: 20151125
  Serious: Yes (Other)
  Sender: FDA-Public Use
  Company Number: GB-BRISTOL-MYERS SQUIBB COMPANY-BMS-2015-062078

PATIENT
  Age: 74 Year
  Sex: Female
  Weight: 80 kg

DRUGS (6)
  1. ELIQUIS [Suspect]
     Active Substance: APIXABAN
     Indication: PRODUCT USED FOR UNKNOWN INDICATION
     Dosage: CONTINUING
     Route: 048
     Dates: start: 20141118
  2. OMEPRAZOLE. [Concomitant]
     Active Substance: OMEPRAZOLE
     Indication: GASTROOESOPHAGEAL REFLUX DISEASE
     Dosage: ONCE A DAY AS NEEDED. ONGOING.
     Route: 048
     Dates: start: 1998
  3. SALBUTAMOL [Concomitant]
     Active Substance: ALBUTEROL
     Indication: PRODUCT USED FOR UNKNOWN INDICATION
     Dosage: ONGOING
     Route: 055
     Dates: start: 2014
  4. PARACETAMOL [Concomitant]
     Active Substance: ACETAMINOPHEN
     Indication: ARTHRITIS
     Dosage: 4 TIMES A DAY AS NEEDED. ONGOING.
     Route: 048
     Dates: start: 2008
  5. PERINDOPRIL [Concomitant]
     Active Substance: PERINDOPRIL
     Indication: HYPERTENSION
     Dosage: ONGOING
     Route: 048
     Dates: start: 2011
  6. CODEINE [Concomitant]
     Active Substance: CODEINE
     Indication: ARTHRITIS
     Dosage: 1-2 4 TIMES A DAY AS NEEDED
     Route: 048
     Dates: start: 2011

REACTIONS (2)
  - Arthralgia [Not Recovered/Not Resolved]
  - Osteoarthritis [Not Recovered/Not Resolved]
